FAERS Safety Report 5645611-0 (Version None)
Quarter: 2008Q1

REPORT INFORMATION
  Report Type: 
  Country: None (occurrence: None)
  Receive Date: 20080229
  Receipt Date: 20080212
  Transmission Date: 20080703
  Serious: Yes (Other)
  Sender: FDA-Public Use
  Company Number: US-BAYER-200813902GPV

PATIENT

DRUGS (1)
  1. GADOPENTETATE DIMEGLUMINE (MAGNEVIST) [Suspect]
     Indication: NUCLEAR MAGNETIC RESONANCE IMAGING
     Route: 042

REACTIONS (2)
  - DYSPNOEA [None]
  - HYPOXIA [None]
